FAERS Safety Report 12700960 (Version 1)
Quarter: 2016Q3

REPORT INFORMATION
  Report Type: Spontaneous
  Country: IT (occurrence: IT)
  Receive Date: 20160831
  Receipt Date: 20160831
  Transmission Date: 20161109
  Serious: Yes (Other)
  Sender: FDA-Public Use
  Company Number: IT-AUROBINDO-AUR-APL-2016-10670

PATIENT
  Age: 76 Year
  Sex: Male

DRUGS (1)
  1. BISOPROLOL FILM-COATED TABLETS [Suspect]
     Active Substance: BISOPROLOL
     Indication: CARDIAC DISORDER
     Dosage: 2.5 MG, DAILY
     Route: 048
     Dates: start: 20160101, end: 20160625

REACTIONS (1)
  - Sinus bradycardia [Recovering/Resolving]

NARRATIVE: CASE EVENT DATE: 20160625
